FAERS Safety Report 10157276 (Version 1)
Quarter: 2014Q2

REPORT INFORMATION
  Report Type: Report from Study
  Country: GB (occurrence: GB)
  Receive Date: 20140507
  Receipt Date: 20140507
  Transmission Date: 20141212
  Serious: Yes (Hospitalization)
  Sender: FDA-Public Use
  Company Number: GB-VERTEX PHARMACEUTICALS INC-2014-002221

PATIENT
  Age: 45 Year
  Sex: Male

DRUGS (6)
  1. VX-950 (TELAPREVIR) [Suspect]
     Indication: HEPATITIS C
     Dosage: UNK, BID
     Route: 048
     Dates: start: 20130526, end: 20130825
  2. PEG INTERFERON [Suspect]
     Indication: HEPATITIS C
     Dosage: UNK UNK, QW
     Route: 058
     Dates: end: 20140228
  3. RIBAVIRIN [Suspect]
     Indication: HEPATITIS C
     Dosage: 3 DF, BID
     Route: 048
     Dates: end: 20140228
  4. METHADONE [Concomitant]
     Dosage: UNK
  5. DIAZEPAM [Concomitant]
     Dosage: UNK
  6. AN UNKNOWN MEDICATION [Concomitant]
     Dosage: 250 MG, UNK

REACTIONS (4)
  - Arthritis [Unknown]
  - Paralysis [Unknown]
  - Psoriasis [Not Recovered/Not Resolved]
  - Oedema peripheral [Unknown]
